FAERS Safety Report 15723373 (Version 1)
Quarter: 2018Q4

REPORT INFORMATION
  Report Type: Spontaneous
  Country: US (occurrence: US)
  Receive Date: 20181214
  Receipt Date: 20181214
  Transmission Date: 20190205
  Serious: Yes (Other)
  Sender: FDA-Public Use
  Company Number: US-SA-2018SA337538

PATIENT
  Age: 59 Year
  Sex: Female

DRUGS (9)
  1. CITRACAL + D [CALCIUM CITRATE;COLECALCIFEROL] [Concomitant]
  2. AUBAGIO [Suspect]
     Active Substance: TERIFLUNOMIDE
     Dosage: UNK
     Route: 048
  3. ACETAMINOPHEN;HYDROCODONE [Concomitant]
  4. LORTAB [LORATADINE] [Concomitant]
     Active Substance: LORATADINE
     Dosage: UNK
  5. FLUZONE [FLUCONAZOLE] [Concomitant]
     Dosage: UNK
  6. VITAMIN D [COLECALCIFEROL] [Concomitant]
  7. TRIAMCINOLONE ACETONIDE. [Concomitant]
     Active Substance: TRIAMCINOLONE ACETONIDE
  8. FIORICET [Concomitant]
     Active Substance: ACETAMINOPHEN\BUTALBITAL\CAFFEINE
  9. EPIPEN [Concomitant]
     Active Substance: EPINEPHRINE
     Dosage: 2-PAK

REACTIONS (1)
  - Multiple sclerosis relapse [Not Recovered/Not Resolved]
